FAERS Safety Report 6818968-2 (Version None)
Quarter: 2010Q3

REPORT INFORMATION
  Report Type: 
  Country: None (occurrence: None)
  Receive Date: 20100707
  Receipt Date: 20100628
  Transmission Date: 20110219
  Serious: Yes (Other)
  Sender: FDA-Public Use
  Company Number: JP-SHIRE-SPV1-2009-00058

PATIENT

DRUGS (2)
  1. IDURSULFASE [Suspect]
     Indication: MUCOPOLYSACCHARIDOSIS II
     Dosage: 11.2 MG, 1X/WEEK
     Route: 041
     Dates: start: 20071204
  2. CHLORPHENIRAMINE MALEATE [Concomitant]
     Indication: PREMEDICATION
     Dosage: .5 ML, UNK

REACTIONS (2)
  - BRAIN STEM AUDITORY EVOKED RESPONSE ABNORMAL [None]
  - CONVULSION [None]
